FAERS Safety Report 10376049 (Version 3)
Quarter: 2014Q4

REPORT INFORMATION
  Report Type: Report from Study
  Country: GB (occurrence: GB)
  Receive Date: 20140811
  Receipt Date: 20141120
  Transmission Date: 20150528
  Serious: Yes (Hospitalization, Other)
  Sender: FDA-Public Use
  Company Number: GB-BRISTOL-MYERS SQUIBB COMPANY-21280086

PATIENT
  Age: 75 Year
  Sex: Female

DRUGS (15)
  1. CODEINE PHOSPHATE [Concomitant]
     Active Substance: CODEINE PHOSPHATE
     Indication: DIARRHOEA
  2. ORENCIA [Suspect]
     Active Substance: ABATACEPT
     Indication: OSTEOARTHRITIS
     Route: 058
  3. ADCAL-D3 [Concomitant]
     Active Substance: CALCIUM CARBONATE\CHOLECALCIFEROL
  4. CITALOPRAM [Concomitant]
     Active Substance: CITALOPRAM HYDROBROMIDE
  5. METHOTREXATE [Concomitant]
     Active Substance: METHOTREXATE
  6. ALENDRONIC ACID [Concomitant]
     Active Substance: ALENDRONIC ACID
  7. NITRAZEPAM [Concomitant]
     Active Substance: NITRAZEPAM
  8. LOSARTAN [Concomitant]
     Active Substance: LOSARTAN
  9. FUROSEMIDE. [Concomitant]
     Active Substance: FUROSEMIDE
  10. METRONIDAZOLE. [Concomitant]
     Active Substance: METRONIDAZOLE
  11. ASPIRIN. [Concomitant]
     Active Substance: ASPIRIN
  12. FOLIC ACID. [Concomitant]
     Active Substance: FOLIC ACID
  13. ORENCIA [Suspect]
     Active Substance: ABATACEPT
     Indication: RHEUMATOID ARTHRITIS
     Route: 058
  14. PRAVASTATIN SODIUM. [Concomitant]
     Active Substance: PRAVASTATIN SODIUM
  15. CODEINE PHOSPHATE [Concomitant]
     Active Substance: CODEINE PHOSPHATE
     Indication: PAIN

REACTIONS (3)
  - Rheumatoid arthritis [Recovering/Resolving]
  - Post procedural haemorrhage [Recovering/Resolving]
  - Aneurysm [Unknown]

NARRATIVE: CASE EVENT DATE: 2014
